FAERS Safety Report 21059721 (Version 1)
Quarter: 2022Q3

REPORT INFORMATION
  Report Type: Spontaneous
  Country: KW (occurrence: KW)
  Receive Date: 20220708
  Receipt Date: 20220708
  Transmission Date: 20221027
  Serious: Yes (Other)
  Sender: FDA-Public Use
  Company Number: KW-Merck Healthcare KGaA-9332398

PATIENT
  Age: 51 Year
  Sex: Female

DRUGS (1)
  1. ERBITUX [Suspect]
     Active Substance: CETUXIMAB
     Indication: Squamous cell carcinoma of head and neck
     Dosage: UNK UNK, UNKNOWN
     Route: 065

REACTIONS (10)
  - Full blood count decreased [Recovered/Resolved]
  - Dysphonia [Unknown]
  - Odynophagia [Unknown]
  - Eating disorder [Unknown]
  - Radiation skin injury [Unknown]
  - Rash [Recovered/Resolved]
  - Diarrhoea [Recovered/Resolved]
  - Nausea [Recovered/Resolved]
  - Vomiting [Recovered/Resolved]
  - Weight decreased [Unknown]
